FAERS Safety Report 12745581 (Version 2)
Quarter: 2016Q4

REPORT INFORMATION
  Report Type: Spontaneous
  Country: US (occurrence: US)
  Receive Date: 20160915
  Receipt Date: 20161116
  Transmission Date: 20170207
  Serious: No
  Sender: FDA-Public Use
  Company Number: US-ASTRAZENECA-2016SE97447

PATIENT
  Age: 61 Year
  Sex: Female
  Weight: 59.9 kg

DRUGS (2)
  1. NEXIUM 24HR [Suspect]
     Active Substance: ESOMEPRAZOLE MAGNESIUM
     Indication: GASTROOESOPHAGEAL REFLUX DISEASE
     Route: 048
     Dates: start: 201608, end: 20160902
  2. LANSOPRAZOLE. [Concomitant]
     Active Substance: LANSOPRAZOLE
     Dosage: 15.0MG UNKNOWN
     Dates: start: 20160910

REACTIONS (3)
  - Crying [Not Recovered/Not Resolved]
  - Off label use [Not Recovered/Not Resolved]
  - Claustrophobia [Not Recovered/Not Resolved]

NARRATIVE: CASE EVENT DATE: 201608
